APPROVED DRUG PRODUCT: TORECAN
Active Ingredient: THIETHYLPERAZINE MALEATE
Strength: 10MG
Dosage Form/Route: TABLET;ORAL
Application: N012753 | Product #001
Applicant: NOVARTIS PHARMACEUTICALS CORP
Approved: Approved Prior to Jan 1, 1982 | RLD: No | RS: No | Type: DISCN